FAERS Safety Report 8046520-2 (Version None)
Quarter: 2012Q1

REPORT INFORMATION
  Report Type: 
  Country: None (occurrence: None)
  Receive Date: 20120113
  Receipt Date: 20120110
  Transmission Date: 20120608
  Serious: Yes (Hospitalization, Other)
  Sender: FDA-Public Use
  Company Number: GB-ABBOTT-12P-167-0891960-00

PATIENT
  Age: 23 Year
  Sex: Female

DRUGS (2)
  1. RISPERIDONE [Concomitant]
     Indication: PRODUCT USED FOR UNKNOWN INDICATION
  2. DEPAKOTE [Suspect]
     Indication: BIPOLAR DISORDER
     Dosage: 1250MG DAILY
     Route: 048
     Dates: start: 20110601, end: 20120104

REACTIONS (4)
  - LIVER FUNCTION TEST ABNORMAL [None]
  - BLOOD BILIRUBIN INCREASED [None]
  - HEPATITIS [None]
  - PSYCHOTIC DISORDER [None]
